FAERS Safety Report 20094074 (Version 1)
Quarter: 2021Q4

REPORT INFORMATION
  Report Type: Spontaneous
  Country: NL (occurrence: NL)
  Receive Date: 20211121
  Receipt Date: 20211121
  Transmission Date: 20220303
  Serious: Yes (Other)
  Sender: FDA-Public Use
  Company Number: NL-LRB-00297895

PATIENT
  Age: 14 Week
  Sex: Male
  Weight: 4.9 kg

DRUGS (2)
  1. DICLOFENAC [Suspect]
     Active Substance: DICLOFENAC
     Indication: Pain
     Dosage: 1 DOSAGE FORM
     Route: 063
  2. DICLOFENAC [Suspect]
     Active Substance: DICLOFENAC
     Indication: Pain
     Dosage: 1 DOSAGE FORM, 1 SPUIT BIJ PIJNAANVAL
     Route: 063
     Dates: start: 20180825

REACTIONS (3)
  - Abdominal pain [Recovering/Resolving]
  - Exposure via breast milk [Unknown]
  - Haematochezia [Recovered/Resolved]

NARRATIVE: CASE EVENT DATE: 20180828
